FAERS Safety Report 24710783 (Version 1)
Quarter: 2024Q4

REPORT INFORMATION
  Report Type: Spontaneous
  Country: US (occurrence: US)
  Receive Date: 20241209
  Receipt Date: 20241209
  Transmission Date: 20250115
  Serious: Yes (Death, Other)
  Sender: AMGEN
  Company Number: US-AMGEN-USASP2024240906

PATIENT
  Age: 66 Year
  Sex: Female

DRUGS (1)
  1. PREDNISONE [Suspect]
     Active Substance: PREDNISONE
     Indication: Thyroiditis fibrous chronic
     Dosage: 60 MILLIGRAM, QD
     Route: 065

REACTIONS (4)
  - Sepsis [Fatal]
  - Fibrosarcoma [Unknown]
  - Cardiac arrest [Unknown]
  - Respiratory failure [Unknown]
